FAERS Safety Report 20207733 (Version 15)
Quarter: 2022Q2

REPORT INFORMATION
  Report Type: Report from Study
  Country: CA (occurrence: CA)
  Receive Date: 20211220
  Receipt Date: 20220411
  Transmission Date: 20220721
  Serious: Yes (Death, Hospitalization, Other)
  Sender: FDA-Public Use
  Company Number: CA-GILEAD-2021-0559750

PATIENT
  Age: 67 Year
  Sex: Female
  Weight: 73.4 kg

DRUGS (26)
  1. SACITUZUMAB GOVITECAN [Suspect]
     Active Substance: SACITUZUMAB GOVITECAN
     Indication: Triple negative breast cancer
     Dosage: 760 MG; 2ND DOSE; 1 FULL CYCLE
     Route: 042
     Dates: start: 20211203, end: 20211203
  2. SACITUZUMAB GOVITECAN [Suspect]
     Active Substance: SACITUZUMAB GOVITECAN
     Dosage: 820 MG; C1D1
     Route: 042
     Dates: start: 20211126
  3. SACITUZUMAB GOVITECAN [Suspect]
     Active Substance: SACITUZUMAB GOVITECAN
     Dosage: 760 MG
     Route: 042
     Dates: start: 20211223
  4. SACITUZUMAB GOVITECAN [Suspect]
     Active Substance: SACITUZUMAB GOVITECAN
     Dosage: 730 MG UNK
     Route: 042
  5. SACITUZUMAB GOVITECAN [Suspect]
     Active Substance: SACITUZUMAB GOVITECAN
     Dosage: 730 MG UNK
     Route: 042
     Dates: start: 20220325
  6. XELODA [Suspect]
     Active Substance: CAPECITABINE
     Indication: Product used for unknown indication
     Route: 065
  7. DOXORUBICIN [Suspect]
     Active Substance: DOXORUBICIN
     Indication: Product used for unknown indication
     Route: 065
  8. BENADRYL [Suspect]
     Active Substance: DIPHENHYDRAMINE HYDROCHLORIDE
     Indication: Premedication
     Dosage: 50 MG PO (PRE-MEDICATION PRIOR TO TRODELVY)
     Route: 065
  9. MODERNA COVID-19 VACCINE [Concomitant]
     Active Substance: ELASOMERAN
  10. TYLENOL [Concomitant]
     Active Substance: ACETAMINOPHEN
     Dosage: 975 MG
  11. TYLENOL [Concomitant]
     Active Substance: ACETAMINOPHEN
     Dosage: 975 MG
  12. TYLENOL [Concomitant]
     Active Substance: ACETAMINOPHEN
     Dosage: 975 MG PO  (PRE-MEDICATION PRIOR TO TRODELVY)
  13. TYLENOL [Concomitant]
     Active Substance: ACETAMINOPHEN
     Dosage: 975 MG PO (PRE-MEDICATION PRIOR TO TRODELVY)
  14. TYLENOL [Concomitant]
     Active Substance: ACETAMINOPHEN
     Dosage: 975 MG PO (PRE-MEDICATION PRIOR TO TRODELVY)
  15. TYLENOL [Concomitant]
     Active Substance: ACETAMINOPHEN
     Dosage: 975 MG PO (PRE-MEDICATION PRIOR TO TRODELVY)
  16. DEXAMETHASONE [Concomitant]
     Active Substance: DEXAMETHASONE
     Dosage: 10 MG
  17. DEXAMETHASONE [Concomitant]
     Active Substance: DEXAMETHASONE
     Dosage: 10 MG  (PRE-MEDICATION PRIOR TO TRODELVY)
  18. DEXAMETHASONE [Concomitant]
     Active Substance: DEXAMETHASONE
     Dosage: 10 MG (PRE-MEDICATION PRIOR TO TRODELVY)
  19. DEXAMETHASONE [Concomitant]
     Active Substance: DEXAMETHASONE
     Dosage: 10 MG IV (PRE-MEDICATION PRIOR TO TRODELVY)
  20. DEXAMETHASONE [Concomitant]
     Active Substance: DEXAMETHASONE
     Dosage: 10 MG (PRE-MEDICATION PRIOR TO TRODELVY)
  21. DEXAMETHASONE [Concomitant]
     Active Substance: DEXAMETHASONE
     Dosage: 10 MG IV (PRE-MEDICATION PRIOR TO TRODELVY)
  22. DEXAMETHASONE [Concomitant]
     Active Substance: DEXAMETHASONE
     Dosage: 10 MG IV (PRE-MEDICATION PRIOR TO TRODELVY)
  23. DEXAMETHASONE [Concomitant]
     Active Substance: DEXAMETHASONE
     Dosage: 10 MG IV(PRE-MEDICATION PRIOR TO TRODELVY)
  24. DEXAMETHASONE [Concomitant]
     Active Substance: DEXAMETHASONE
     Dosage: 10 MG IV(PRE-MEDICATION PRIOR TO TRODELVY)
  25. DEXAMETHASONE [Concomitant]
     Active Substance: DEXAMETHASONE
     Dosage: 10 MG IV(PRE-MEDICATION PRIOR TO TRODELVY)
  26. DEXAMETHASONE [Concomitant]
     Active Substance: DEXAMETHASONE
     Dosage: 10 MG IV (PRE-MEDICATION PRIOR TO TRODELVY)

REACTIONS (53)
  - Death [Fatal]
  - Weight increased [Not Recovered/Not Resolved]
  - Dysphagia [Unknown]
  - Tooth fracture [Not Recovered/Not Resolved]
  - Eating disorder [Not Recovered/Not Resolved]
  - Speech disorder [Not Recovered/Not Resolved]
  - Somnolence [Unknown]
  - Formication [Unknown]
  - Haemoglobin abnormal [Unknown]
  - Stress [Unknown]
  - Pain [Not Recovered/Not Resolved]
  - Fatigue [Unknown]
  - Red blood cell count decreased [Recovering/Resolving]
  - Weight increased [Unknown]
  - Hypotension [Unknown]
  - Weight decreased [Unknown]
  - Inappropriate schedule of product administration [Unknown]
  - Inappropriate schedule of product administration [Unknown]
  - Haemoglobin decreased [Unknown]
  - Pain [Not Recovered/Not Resolved]
  - Mass [Not Recovered/Not Resolved]
  - Dyspnoea [Recovering/Resolving]
  - Asthenia [Recovering/Resolving]
  - Feeling jittery [Recovering/Resolving]
  - Energy increased [Recovering/Resolving]
  - Abdominal pain upper [Recovered/Resolved]
  - Rash [Recovered/Resolved]
  - Hypersensitivity [Recovered/Resolved]
  - Diarrhoea [Recovered/Resolved]
  - Constipation [Recovered/Resolved]
  - Discomfort [Not Recovered/Not Resolved]
  - Heart rate increased [Unknown]
  - Weight fluctuation [Unknown]
  - Blood pressure systolic abnormal [Unknown]
  - Dizziness [Unknown]
  - Lymphoedema [Recovered/Resolved]
  - Abdominal pain [Unknown]
  - Diarrhoea [Recovered/Resolved]
  - Fatigue [Unknown]
  - Peripheral swelling [Recovering/Resolving]
  - Somnolence [Unknown]
  - Weight decreased [Unknown]
  - Gait disturbance [Recovered/Resolved]
  - Diarrhoea [Recovered/Resolved]
  - Asthenia [Recovered/Resolved]
  - Face injury [Unknown]
  - Dizziness [Recovered/Resolved]
  - Dizziness [Recovered/Resolved]
  - Therapeutic response unexpected [Unknown]
  - Weight decreased [Unknown]
  - Haemoglobin decreased [Unknown]
  - Off label use [Not Recovered/Not Resolved]
  - Weight decreased [Not Recovered/Not Resolved]

NARRATIVE: CASE EVENT DATE: 20211126
